FAERS Safety Report 17618262 (Version 1)
Quarter: 2020Q2

REPORT INFORMATION
  Report Type: Spontaneous
  Country: US (occurrence: US)
  Receive Date: 20200402
  Receipt Date: 20200402
  Transmission Date: 20200713
  Serious: Yes (Hospitalization, Other)
  Sender: FDA-Public Use
  Company Number: US-PFIZER INC-2013217736

PATIENT
  Age: 71 Year
  Sex: Female
  Weight: 93 kg

DRUGS (25)
  1. RELAFEN [Concomitant]
     Active Substance: NABUMETONE
     Dosage: 500 MG, 2X/DAY, (500 MG TABLET TAKE 1 TABLET(S) BY MOUTH BID)
     Route: 048
  2. METOPROLOL TARTRATE. [Concomitant]
     Active Substance: METOPROLOL TARTRATE
     Dosage: 25 MG, 2X/DAY
     Route: 048
  3. IPRATROPIUM BROMIDE AND ALBUTEROL SULFATE [Concomitant]
     Active Substance: ALBUTEROL SULFATE\IPRATROPIUM BROMIDE
     Dosage: UNK, AS NEEDED, (IPRATROPIUM-0.5 MG/ALBUTEROL SULFATE-2.5 MG) 1 (ONE) SOLUTION (INHALATION)
     Route: 055
     Dates: start: 20150504
  4. LYRICA [Suspect]
     Active Substance: PREGABALIN
     Indication: NEURALGIA
  5. TRAMADOL. [Concomitant]
     Active Substance: TRAMADOL
     Dosage: UNK UNK, AS NEEDED, (50MG TABLET TAKE 1-2 TABS PO Q6HR PRN)
     Route: 048
  6. MECLIZINE HCL [Concomitant]
     Active Substance: MECLIZINE HYDROCHLORIDE
     Dosage: 12.5 MG, 2X/DAY, (1/2 TABLET (0RAL) TWO TIMES DAILY)
     Route: 048
     Dates: start: 20160714
  7. IPRATROPIUM BROMIDE AND ALBUTEROL SULFATE [Concomitant]
     Active Substance: ALBUTEROL SULFATE\IPRATROPIUM BROMIDE
     Dosage: UNK, AS NEEDED, (IPRATROPIUM-0.5 MG /ALBUTEROL SULFATE3MG (2.5 MG BAS)/1 UNIT INH Q4HOURS PRN)
     Route: 055
  8. SIMVASTATIN. [Concomitant]
     Active Substance: SIMVASTATIN
     Dosage: 40 MG, 1X/DAY, (40 MG PO QPM TAB)
     Route: 048
  9. BYSTOLIC [Concomitant]
     Active Substance: NEBIVOLOL HYDROCHLORIDE
     Dosage: 5 MG, DAILY, (5 MG TABLET TAKE 1 TABLET(S) BY MOUTH DAILY)
     Route: 048
  10. OXYGEN. [Concomitant]
     Active Substance: OXYGEN
     Dosage: UNK
  11. WELLBUTRIN SR [Concomitant]
     Active Substance: BUPROPION HYDROCHLORIDE
     Dosage: 150 MG, UNK
     Route: 048
  12. ZOCOR [Concomitant]
     Active Substance: SIMVASTATIN
     Dosage: 40 MG, DAILY
     Route: 048
     Dates: start: 20160907
  13. LYRICA [Suspect]
     Active Substance: PREGABALIN
     Indication: BACK PAIN
     Dosage: 75 MG, 3X/DAY
     Dates: start: 1996
  14. LYRICA [Suspect]
     Active Substance: PREGABALIN
     Indication: NERVE INJURY
     Dosage: 100 MG, 3X/DAY
     Route: 048
  15. FENTANYL. [Concomitant]
     Active Substance: FENTANYL
     Dosage: 75 UG, UNK (1 (ONE) PATCH 72HR (TRANSDERMAL) EVERY 72 HOURS)
     Route: 062
     Dates: start: 20161004
  16. TRAMADOL. [Concomitant]
     Active Substance: TRAMADOL
     Dosage: 50 MG, AS NEEDED, (1 TAB PO Q6PRN #20 TAB TAKE AS NEEDED FOR PAIN)
     Route: 048
  17. MECLIZINE HCL [Concomitant]
     Active Substance: MECLIZINE HYDROCHLORIDE
     Dosage: 12.5 MG, AS NEEDED, (12.5 MG TABLET TAKE 1 TABLET(S) BY MOUTH TID PRN)
     Route: 048
  18. ZESTRIL [Concomitant]
     Active Substance: LISINOPRIL
     Dosage: 10 MG, DAILY, (10MG TABLET TAKE 1 TABLET(S) BY MOUTH DAILY)
     Route: 048
     Dates: start: 20160907
  19. WELLBUTRIN SR [Concomitant]
     Active Substance: BUPROPION HYDROCHLORIDE
     Dosage: 150 MG, 1X/DAY, (150MG TABLETS, SUSTAINED RELEASE TAKE 1 TABLET(S) BY MOUTH QD)
     Route: 048
  20. DUONEB [Concomitant]
     Active Substance: ALBUTEROL SULFATE\IPRATROPIUM BROMIDE
     Dosage: 3 ML, AS NEEDED AS NEEDED (3ML BY NEBULIZER QID WITH UP TO 2 ADDITIONAL 3 ML DOSES/DAY)
  21. PROTONIX [OMEPRAZOLE] [Concomitant]
     Active Substance: OMEPRAZOLE
     Dosage: 40 MG, DAILY
     Route: 048
     Dates: start: 20151203
  22. LYRICA [Suspect]
     Active Substance: PREGABALIN
     Indication: POST PROCEDURAL COMPLICATION
  23. METOPROLOL TARTRATE. [Concomitant]
     Active Substance: METOPROLOL TARTRATE
     Dosage: 12.5 MG, 2X/DAY, (1/2 TABLET (ORAL) TWO TIMES DAILY)
     Route: 048
     Dates: start: 20160513
  24. DURAGESIC [Concomitant]
     Active Substance: FENTANYL
     Dosage: 75 UG, AS NEEDED, (75MCG/HR TRANSDERMAL PATCH APPLY 1 PATCH TO UPPER TORSO Q72HR PRN)
     Route: 062
  25. TRAMADOL. [Concomitant]
     Active Substance: TRAMADOL
     Indication: PAIN
     Dosage: UNK, AS NEEDED, (1-2 TABLET (ORAL) EVERY 6 HOURS AS NEEDED)
     Route: 048
     Dates: start: 20160907

REACTIONS (10)
  - Rhinorrhoea [Unknown]
  - Haemorrhagic stroke [Recovering/Resolving]
  - Fall [Unknown]
  - Movement disorder [Unknown]
  - Renal impairment [Unknown]
  - Dizziness [Unknown]
  - Cerebral disorder [Unknown]
  - Limb discomfort [Unknown]
  - Cerebral haemorrhage [Recovering/Resolving]
  - Head injury [Unknown]
